FAERS Safety Report 8004777-8 (Version None)
Quarter: 2011Q4

REPORT INFORMATION
  Report Type: 
  Country: None (occurrence: None)
  Receive Date: 20111220
  Receipt Date: 20111205
  Transmission Date: 20120403
  Serious: Yes (Other)
  Sender: FDA-Public Use
  Company Number: FK201102879

PATIENT
  Age: 69 Year
  Sex: Female

DRUGS (3)
  1. LANSOPRAZOLE [Concomitant]
  2. GENTAMICIN [Suspect]
     Indication: BRUCELLOSIS
     Dosage: 160 MG, PER DAY X 21 DAYS, INTRAMUSCULAR
     Route: 030
  3. DICLOFENAC POTASSIUM [Suspect]
     Indication: BRUCELLOSIS
     Dosage: 75 MG , PER DAY X 21 DAYS, INTRAMUSCULAR
     Route: 030

REACTIONS (2)
  - RENAL FAILURE ACUTE [None]
  - NEPHROPATHY TOXIC [None]
